FAERS Safety Report 5963189-9 (Version None)
Quarter: 2008Q4

REPORT INFORMATION
  Report Type: 
  Country: None (occurrence: None)
  Receive Date: 20081119
  Receipt Date: 20080721
  Transmission Date: 20090506
  Serious: No
  Sender: FDA-Public Use
  Company Number: WAES 0806USA08949

PATIENT
  Age: 86 Year
  Sex: Female
  Weight: 77.1115 kg

DRUGS (5)
  1. JANUVIA [Suspect]
     Indication: BLOOD GLUCOSE
     Dosage: SEE IMAGE
     Route: 048
     Dates: start: 20080601, end: 20080101
  2. JANUVIA [Suspect]
     Indication: BLOOD GLUCOSE
     Dosage: SEE IMAGE
     Route: 048
     Dates: start: 20080625, end: 20080601
  3. JANUVIA [Suspect]
     Indication: BLOOD GLUCOSE
     Dosage: SEE IMAGE
     Route: 048
     Dates: start: 20080101
  4. . [Concomitant]
  5. GLYBURIDE [Concomitant]

REACTIONS (4)
  - BACK PAIN [None]
  - FLATULENCE [None]
  - PAIN [None]
  - WRONG TECHNIQUE IN DRUG USAGE PROCESS [None]
